FAERS Safety Report 8327671-1 (Version None)
Quarter: 2012Q2

REPORT INFORMATION
  Report Type: 
  Country: None (occurrence: None)
  Receive Date: 20120502
  Receipt Date: 20120430
  Transmission Date: 20120825
  Serious: No
  Sender: FDA-Public Use
  Company Number: US-PFIZER INC-2012106770

PATIENT
  Age: 52 Year
  Sex: Female
  Weight: 75.283 kg

DRUGS (2)
  1. LYRICA [Suspect]
     Indication: FIBROMYALGIA
     Dosage: 150 MG, 2X/DAY
     Route: 048
     Dates: start: 20120417
  2. EFFEXOR [Concomitant]
     Indication: ANXIETY
     Dosage: 75 MG, DAILY
     Route: 048

REACTIONS (1)
  - WEIGHT INCREASED [None]
